FAERS Safety Report 9342552 (Version 2)
Quarter: 2013Q2

REPORT INFORMATION
  Report Type: Spontaneous
  Country: FR (occurrence: FR)
  Receive Date: 20130611
  Receipt Date: 20130618
  Transmission Date: 20140414
  Serious: Yes (Death)
  Sender: FDA-Public Use
  Company Number: FR-TEVA-411383ISR

PATIENT
  Age: 89 Year
  Sex: Female

DRUGS (9)
  1. FUROSEMIDE [Suspect]
     Indication: PULMONARY OEDEMA
     Dosage: 2 TABLET DAILY; 1 TABLET IN THE MORNING,0.5 TABLET AT MIDDAY AND 0.5 IN THE EVENING
  2. FUROSEMIDE [Suspect]
     Indication: AORTIC DISORDER
  3. FUROSEMIDE [Suspect]
     Indication: FATIGUE
  4. DETENSIEL [Concomitant]
  5. AMIODARONE [Concomitant]
  6. ESOMEPRAZOLE [Concomitant]
  7. TIMOFEROL [Concomitant]
  8. EFFERALGAN [Concomitant]
  9. ARANESP [Concomitant]
     Indication: REFRACTORY CYTOPENIA WITH UNILINEAGE DYSPLASIA
     Route: 058

REACTIONS (3)
  - Death [Fatal]
  - Somnolence [Unknown]
  - Somnolence [Unknown]
